FAERS Safety Report 6192669-9 (Version None)
Quarter: 2009Q2

REPORT INFORMATION
  Report Type: 
  Country: None (occurrence: None)
  Receive Date: 20090518
  Receipt Date: 20090507
  Transmission Date: 20091009
  Serious: Yes (Other)
  Sender: FDA-Public Use
  Company Number: US-ROCHE-624720

PATIENT
  Sex: Female
  Weight: 75.8 kg

DRUGS (1)
  1. CAPECITABINE [Suspect]
     Dosage: TEMPORARILY OFF
     Route: 048
     Dates: start: 20081212, end: 20090410

REACTIONS (5)
  - DEHYDRATION [None]
  - DIARRHOEA [None]
  - FAECES DISCOLOURED [None]
  - PANCREATIC CARCINOMA [None]
  - TONGUE DISCOLOURATION [None]
